FAERS Safety Report 6010828-2 (Version None)
Quarter: 2008Q4

REPORT INFORMATION
  Report Type: 
  Country: None (occurrence: None)
  Receive Date: 20081218
  Receipt Date: 20081210
  Transmission Date: 20090506
  Serious: Yes (Other)
  Sender: FDA-Public Use
  Company Number: PHHY2008CA31597

PATIENT
  Sex: Female

DRUGS (1)
  1. EXELON [Suspect]
     Indication: DEMENTIA ALZHEIMER'S TYPE
     Dosage: 12 MG/DAY
     Route: 048
     Dates: start: 20071121

REACTIONS (3)
  - FALL [None]
  - HIP FRACTURE [None]
  - SURGERY [None]
